FAERS Safety Report 9486917 (Version 2)
Quarter: 2013Q3

REPORT INFORMATION
  Report Type: Spontaneous
  Country: BR (occurrence: BR)
  Receive Date: 20130829
  Receipt Date: 20130924
  Transmission Date: 20140515
  Serious: Yes (Hospitalization, Other)
  Sender: FDA-Public Use
  Company Number: BR-ASTRAZENECA-2013SE65263

PATIENT
  Age: 63 Year
  Sex: Male
  Weight: 110 kg

DRUGS (3)
  1. ZOLADEX LA [Suspect]
     Indication: PROSTATE CANCER METASTATIC
     Route: 058
     Dates: start: 2005, end: 2012
  2. ZOMETA [Concomitant]
     Dosage: MONTHLY
  3. DIOVAN [Concomitant]
     Dates: start: 2009

REACTIONS (3)
  - Toxicity to various agents [Unknown]
  - Pulmonary fibrosis [Not Recovered/Not Resolved]
  - Pneumonia [Recovered/Resolved]
